FAERS Safety Report 8360748-3 (Version None)
Quarter: 2012Q2

REPORT INFORMATION
  Report Type: 
  Country: None (occurrence: None)
  Receive Date: 20120515
  Receipt Date: 20120509
  Transmission Date: 20120825
  Serious: Yes (Hospitalization)
  Sender: FDA-Public Use
  Company Number: IT-ABBOTT-12P-083-0933956-00

PATIENT
  Sex: Female

DRUGS (8)
  1. ATENOLOL [Concomitant]
     Indication: HYPERTENSION
     Route: 048
  2. PRILOSEC [Concomitant]
     Indication: HELICOBACTER INFECTION
  3. ATORVASTATIN CALCIUM [Concomitant]
     Indication: DYSLIPIDAEMIA
     Route: 048
  4. AMLODIPINE [Concomitant]
     Indication: HYPERTENSION
     Route: 048
  5. RAMIPRIL [Concomitant]
     Indication: HYPERTENSION
     Route: 048
  6. AMOXICILLIN [Concomitant]
     Indication: HELICOBACTER INFECTION
  7. CLARITHROMYCIN [Suspect]
     Indication: HELICOBACTER INFECTION
     Dosage: 1 UNIT DAILY
     Route: 048
     Dates: start: 20120507, end: 20120507
  8. FLECAINIDE ACETATE [Concomitant]
     Indication: ATRIAL FIBRILLATION
     Route: 048

REACTIONS (4)
  - DYSPNOEA [None]
  - PRURITUS GENERALISED [None]
  - ABDOMINAL PAIN UPPER [None]
  - ERYTHEMA [None]
